FAERS Safety Report 13611867 (Version 5)
Quarter: 2022Q4

REPORT INFORMATION
  Report Type: Spontaneous
  Country: ES (occurrence: ES)
  Receive Date: 20170605
  Receipt Date: 20221212
  Transmission Date: 20230113
  Serious: Yes (Hospitalization, Other)
  Sender: FDA-Public Use
  Company Number: ES-TEVA-774045ISR

PATIENT
  Age: 67 Year
  Sex: Female

DRUGS (1)
  1. RISEDRONIC ACID [Suspect]
     Active Substance: RISEDRONIC ACID
     Indication: Osteoporosis postmenopausal
     Route: 065

REACTIONS (1)
  - Mesenteric panniculitis [Recovered/Resolved]
